FAERS Safety Report 9930604 (Version 1)
Quarter: 2014Q1

REPORT INFORMATION
  Report Type: Spontaneous
  Country: US (occurrence: US)
  Receive Date: 20140227
  Receipt Date: 20140227
  Transmission Date: 20141002
  Serious: No
  Sender: FDA-Public Use
  Company Number: US-AMGEN-USASP2013089201

PATIENT
  Age: 53 Year
  Sex: Female
  Weight: 77.55 kg

DRUGS (1)
  1. ENBREL [Suspect]
     Indication: RHEUMATOID ARTHRITIS
     Dosage: UNK
     Route: 058
     Dates: start: 2006, end: 2013

REACTIONS (2)
  - Therapeutic response decreased [Unknown]
  - Pain [Unknown]
